FAERS Safety Report 4571390-4 (Version None)
Quarter: 2005Q1

REPORT INFORMATION
  Report Type: 
  Country: None (occurrence: None)
  Receive Date: 20050205
  Receipt Date: 20040223
  Transmission Date: 20050727
  Serious: Yes (Death, Life-Threatening, Hospitalization)
  Sender: FDA-Public Use
  Company Number: IT-ABBOTT-04P-083-0251244-00

PATIENT
  Sex: Female
  Weight: 66 kg

DRUGS (11)
  1. HUMIRA [Suspect]
     Indication: RHEUMATOID ARTHRITIS
     Dosage: 40 MG
     Route: 058
     Dates: start: 20031203, end: 20031203
  2. METHOTREXATE SODIUM [Concomitant]
     Indication: RHEUMATOID ARTHRITIS
     Route: 048
     Dates: start: 20020927
  3. FOLIC ACID [Concomitant]
     Indication: RHEUMATOID ARTHRITIS
     Route: 048
     Dates: start: 20020927
  4. METHYLPREDNISOLONE [Concomitant]
     Indication: RHEUMATOID ARTHRITIS
     Route: 048
     Dates: start: 20020927
  5. CELECOXIB [Concomitant]
     Indication: RHEUMATOID ARTHRITIS
     Dates: start: 20020722
  6. FUROSEMIDE [Concomitant]
     Indication: MITRAL VALVE DISEASE
     Route: 048
     Dates: start: 20020601
  7. CANRENOIC ACID [Concomitant]
     Indication: MITRAL VALVE DISEASE
     Route: 048
     Dates: start: 20020601
  8. MISOPROSTOL [Concomitant]
     Indication: PROPHYLAXIS AGAINST GASTROINTESTINAL ULCER
     Route: 048
     Dates: start: 20020601
  9. COUMADIN [Concomitant]
     Indication: MITRAL VALVE DISEASE
     Route: 048
     Dates: start: 20020601
  10. LORAZEPAM [Concomitant]
     Indication: INSOMNIA
     Route: 048
     Dates: start: 20020601
  11. CLODRONATE DISODIUM [Concomitant]
     Indication: SPINAL FRACTURE
     Route: 042
     Dates: start: 20040228, end: 20040229

REACTIONS (3)
  - COAGULATION FACTOR DECREASED [None]
  - INTESTINAL PERFORATION [None]
  - PERITONITIS [None]
